FAERS Safety Report 4849671-6 (Version None)
Quarter: 2005Q4

REPORT INFORMATION
  Report Type: 
  Country: None (occurrence: None)
  Receive Date: 20051115
  Receipt Date: 20050805
  Transmission Date: 20060501
  Serious: Yes (Life-Threatening, Hospitalization)
  Sender: FDA-Public Use
  Company Number: 406875

PATIENT
  Age: 48 Year
  Sex: Female
  Weight: 75.3 kg

DRUGS (2)
  1. PEGASYS [Suspect]
     Indication: HEPATITIS C VIRUS
     Dosage: SUBCUTANEOUS
     Route: 058
     Dates: start: 20050211, end: 20050506
  2. COPEGUS [Suspect]
     Indication: HEPATITIS C VIRUS
     Dosage: ORAL
     Route: 048
     Dates: start: 20050211, end: 20050506

REACTIONS (5)
  - DIABETES MELLITUS [None]
  - EPISTAXIS [None]
  - PANCREATITIS [None]
  - THROMBOCYTOPENIC PURPURA [None]
  - URINARY TRACT INFECTION PSEUDOMONAL [None]
